FAERS Safety Report 8298977-X (Version None)
Quarter: 2012Q2

REPORT INFORMATION
  Report Type: 
  Country: None (occurrence: None)
  Receive Date: 20120419
  Receipt Date: 20120412
  Transmission Date: 20120825
  Serious: Yes (Hospitalization)
  Sender: FDA-Public Use
  Company Number: US-MERCK-1201USA03706

PATIENT
  Age: 78 Year
  Sex: Female
  Weight: 80 kg

DRUGS (8)
  1. FOSAMAX [Suspect]
     Indication: OSTEOPENIA
     Route: 048
     Dates: start: 20000222, end: 20000902
  2. ALENDRONATE SODIUM [Suspect]
     Indication: OSTEOPENIA
     Route: 048
     Dates: start: 20080527, end: 20081208
  3. ALENDRONATE SODIUM [Suspect]
     Indication: OSTEOPOROSIS
     Route: 048
     Dates: start: 20080527, end: 20081208
  4. ALENDRONATE SODIUM [Suspect]
     Route: 048
     Dates: start: 20090115
  5. FOSAMAX [Suspect]
     Route: 048
     Dates: start: 20000705, end: 20070814
  6. FOSAMAX [Suspect]
     Indication: OSTEOPOROSIS
     Route: 048
     Dates: start: 20000222, end: 20000902
  7. FOSAMAX [Suspect]
     Route: 048
     Dates: start: 20000705, end: 20070814
  8. ALLOPURINOL [Concomitant]
     Indication: NEPHRECTOMY
     Route: 048
     Dates: start: 19910101

REACTIONS (31)
  - FALL [None]
  - ARTHRITIS [None]
  - OBESITY [None]
  - FRACTURED COCCYX [None]
  - SCIATICA [None]
  - INTERVERTEBRAL DISC PROTRUSION [None]
  - HYPERPARATHYROIDISM [None]
  - WEIGHT DECREASED [None]
  - SPINAL DISORDER [None]
  - SKIN LESION [None]
  - HELICOBACTER GASTRITIS [None]
  - CONSTIPATION [None]
  - SPINAL FRACTURE [None]
  - CYSTITIS [None]
  - HYPERTENSION [None]
  - DYSPEPSIA [None]
  - LOW TURNOVER OSTEOPATHY [None]
  - TOOTH DISORDER [None]
  - SPINAL CORD INJURY [None]
  - FEMUR FRACTURE [None]
  - HAEMORRHOIDS [None]
  - HYPOPARATHYROIDISM [None]
  - GASTROOESOPHAGEAL REFLUX DISEASE [None]
  - CORONARY ARTERY DISEASE [None]
  - DEPRESSION [None]
  - HYPERLIPIDAEMIA [None]
  - BRONCHITIS [None]
  - BLOOD CHOLESTEROL INCREASED [None]
  - MITRAL VALVE PROLAPSE [None]
  - HYPOTHYROIDISM [None]
  - SPINAL COLUMN STENOSIS [None]
